FAERS Safety Report 17526086 (Version 1)
Quarter: 2020Q1

REPORT INFORMATION
  Report Type: Spontaneous
  Country: GB (occurrence: GB)
  Receive Date: 20200311
  Receipt Date: 20200311
  Transmission Date: 20200409
  Serious: Yes (Other)
  Sender: FDA-Public Use
  Company Number: GB-ACCORD-175101

PATIENT
  Age: 35 Year
  Sex: Male

DRUGS (5)
  1. QUETIAPINE. [Suspect]
     Active Substance: QUETIAPINE
     Indication: BIPOLAR DISORDER
     Dosage: INCREASING DAILY BY 50MG TO 100MG TO MAX DOSE 800MG/DAY
     Route: 048
     Dates: start: 20200110, end: 20200122
  2. TRIHEXYPHENIDYL [Concomitant]
     Active Substance: TRIHEXYPHENIDYL
  3. TETRABENAZINE. [Concomitant]
     Active Substance: TETRABENAZINE
  4. PROCYCLIDINE [Concomitant]
     Active Substance: PROCYCLIDINE
  5. PARACETAMOL [Concomitant]
     Active Substance: ACETAMINOPHEN

REACTIONS (3)
  - Micturition urgency [Unknown]
  - Abdominal pain upper [Unknown]
  - Urinary retention [Unknown]

NARRATIVE: CASE EVENT DATE: 20200121
